FAERS Safety Report 5668886-0 (Version None)
Quarter: 2008Q1

REPORT INFORMATION
  Report Type: 
  Country: None (occurrence: None)
  Receive Date: 20080317
  Receipt Date: 20080304
  Transmission Date: 20080703
  Serious: Yes (Life-Threatening)
  Sender: FDA-Public Use
  Company Number: KZ-BAYER-200814806GPV

PATIENT
  Age: 30 Year
  Sex: Female

DRUGS (1)
  1. ULTRAVIST 300 [Suspect]
     Indication: NEPHROLITHIASIS
     Dosage: TOTAL DAILY DOSE: 20 ML
     Route: 040
     Dates: start: 20080303, end: 20080303

REACTIONS (3)
  - ANAPHYLACTIC SHOCK [None]
  - MEAN ARTERIAL PRESSURE DECREASED [None]
  - MYDRIASIS [None]
